FAERS Safety Report 23471889 (Version 2)
Quarter: 2024Q1

REPORT INFORMATION
  Report Type: Report from Study
  Country: US (occurrence: US)
  Receive Date: 20240202
  Receipt Date: 20240327
  Transmission Date: 20240410
  Serious: No
  Sender: FDA-Public Use
  Company Number: US-BIOVITRUM-2024-US-001609

PATIENT
  Age: 12 Month
  Sex: Male

DRUGS (10)
  1. SYNAGIS [Suspect]
     Active Substance: PALIVIZUMAB
     Indication: Immunodeficiency
     Dosage: 15 MG/KG EVERY 28 DAYS
     Route: 030
  2. SYNAGIS [Suspect]
     Active Substance: PALIVIZUMAB
     Indication: Truncus arteriosus persistent
  3. SYNAGIS [Suspect]
     Active Substance: PALIVIZUMAB
     Indication: Gastrointestinal malformation
  4. SYNAGIS [Suspect]
     Active Substance: PALIVIZUMAB
     Indication: Liver transplant
  5. TACROLIMUS [Concomitant]
     Active Substance: TACROLIMUS
     Indication: Product used for unknown indication
  6. PREDNISOLONE [Concomitant]
     Active Substance: PREDNISOLONE
     Indication: Product used for unknown indication
  7. SULFAMETHOXAZOLE [Concomitant]
     Active Substance: SULFAMETHOXAZOLE
     Indication: Product used for unknown indication
  8. FIRST-LANSOPRAZOLE [Concomitant]
     Indication: Product used for unknown indication
  9. KATERZIA [Concomitant]
     Active Substance: AMLODIPINE BENZOATE
     Indication: Product used for unknown indication
     Dosage: 1 MG/ML SUS
  10. ENFAMIL INFANT [Concomitant]
     Indication: Product used for unknown indication

REACTIONS (7)
  - Respiratory syncytial virus infection [Unknown]
  - Pyrexia [Unknown]
  - Eating disorder [Unknown]
  - Vomiting [Unknown]
  - Cough [Unknown]
  - Hyperhidrosis [Unknown]
  - Rhinorrhoea [Unknown]
